FAERS Safety Report 9399876 (Version 1)
Quarter: 2013Q3

REPORT INFORMATION
  Report Type: Spontaneous
  Country: IE (occurrence: IE)
  Receive Date: 20130715
  Receipt Date: 20130715
  Transmission Date: 20140515
  Serious: Yes (Other)
  Sender: FDA-Public Use
  Company Number: IE-JNJFOC-20130707274

PATIENT
  Sex: Male

DRUGS (3)
  1. PALEXIA SR [Suspect]
     Indication: PAIN
     Route: 048
  2. TYLEX [Concomitant]
     Indication: PAIN
     Route: 048
  3. PARACETAMOL [Concomitant]
     Indication: PAIN
     Route: 048

REACTIONS (2)
  - Delirium [Unknown]
  - Pyrexia [Unknown]
